FAERS Safety Report 5502498-4 (Version None)
Quarter: 2007Q4

REPORT INFORMATION
  Report Type: 
  Country: None (occurrence: None)
  Receive Date: 20071030
  Receipt Date: 20071010
  Transmission Date: 20080405
  Serious: Yes (Other)
  Sender: FDA-Public Use
  Company Number: MX-PFIZER INC-2007089537

PATIENT
  Age: 56 Year
  Sex: Female

DRUGS (3)
  1. LYRICA [Suspect]
     Dosage: DAILY DOSE:150MG
     Dates: start: 20070201, end: 20070901
  2. CELECOXIB [Concomitant]
  3. CONJUGATED ESTROGEN/MEDROXYPROGESTERONE ACETA [Concomitant]

REACTIONS (5)
  - ARTHRALGIA [None]
  - FATIGUE [None]
  - HYPERTENSION [None]
  - MOOD ALTERED [None]
  - MYALGIA [None]
